FAERS Safety Report 14046749 (Version 1)
Quarter: 2017Q4

REPORT INFORMATION
  Report Type: Spontaneous
  Country: GR (occurrence: GR)
  Receive Date: 20171005
  Receipt Date: 20171005
  Transmission Date: 20180321
  Serious: Yes (Other)
  Sender: FDA-Public Use
  Company Number: PHHY2017GR144876

PATIENT
  Age: 78 Year
  Sex: Female

DRUGS (1)
  1. AZOPT [Suspect]
     Active Substance: BRINZOLAMIDE
     Indication: ANGLE CLOSURE GLAUCOMA
     Route: 047

REACTIONS (1)
  - Arrhythmia [Unknown]
